FAERS Safety Report 19398710 (Version 1)
Quarter: 2021Q2

REPORT INFORMATION
  Report Type: Spontaneous
  Country: AT (occurrence: AT)
  Receive Date: 20210610
  Receipt Date: 20210610
  Transmission Date: 20210717
  Serious: Yes (Other)
  Sender: FDA-Public Use
  Company Number: AT-TAKEDA-2021TJP037776

PATIENT
  Age: 87 Year
  Sex: Male

DRUGS (1)
  1. FACTOR VIII INHIBITOR BYPASSING FRACTION [Suspect]
     Active Substance: ANTI-INHIBITOR COAGULANT COMPLEX
     Indication: HAEMOSTASIS
     Dosage: UNK
     Route: 065

REACTIONS (1)
  - Acute myocardial infarction [Recovered/Resolved]
